FAERS Safety Report 4494581-X (Version None)
Quarter: 2004Q4

REPORT INFORMATION
  Report Type: 
  Country: None (occurrence: None)
  Receive Date: 20041103
  Receipt Date: 20041019
  Transmission Date: 20050328
  Serious: Yes (Hospitalization)
  Sender: FDA-Public Use
  Company Number: 2004-0007452

PATIENT
  Age: 10 Year
  Sex: Male
  Weight: 21.5 kg

DRUGS (3)
  1. VIREAD [Suspect]
     Indication: HIV INFECTION
     Dosage: 300 MG, 1 IN 1 D, ORAL
     Route: 048
     Dates: start: 20030901
  2. VIDEX [Concomitant]
  3. KALETRA [Concomitant]

REACTIONS (5)
  - ASTHENIA [None]
  - BLOOD POTASSIUM DECREASED [None]
  - RENAL TUBULAR DISORDER [None]
  - THIRST [None]
  - WEIGHT DECREASED [None]
